FAERS Safety Report 10758801 (Version 3)
Quarter: 2015Q2

REPORT INFORMATION
  Report Type: Spontaneous
  Country: US (occurrence: US)
  Receive Date: 20150203
  Receipt Date: 20150409
  Transmission Date: 20150821
  Serious: No
  Sender: FDA-Public Use
  Company Number: US-PFIZER INC-2015039064

PATIENT
  Age: 56 Year
  Sex: Female
  Weight: 54 kg

DRUGS (2)
  1. PREMARIN [Suspect]
     Active Substance: ESTROGENS, CONJUGATED
     Indication: PAIN
     Dosage: 0.5 MG, DAILY
     Route: 067
     Dates: start: 2014
  2. PREMARIN [Suspect]
     Active Substance: ESTROGENS, CONJUGATED
     Indication: MENOPAUSE
     Dosage: 1 MG, EVERY THREE DAYS
     Route: 067
     Dates: start: 201403

REACTIONS (4)
  - Ovarian disorder [Unknown]
  - Drug ineffective [Not Recovered/Not Resolved]
  - Dysphagia [Unknown]
  - Off label use [Unknown]

NARRATIVE: CASE EVENT DATE: 201403
